FAERS Safety Report 4988062-4 (Version None)
Quarter: 2006Q2

REPORT INFORMATION
  Report Type: 
  Country: None (occurrence: None)
  Receive Date: 20060425
  Receipt Date: 20060410
  Transmission Date: 20061013
  Serious: Yes (Hospitalization)
  Sender: FDA-Public Use
  Company Number: 2006049546

PATIENT
  Age: 25 Year
  Sex: Male

DRUGS (4)
  1. NEURONTIN [Suspect]
     Indication: ILL-DEFINED DISORDER
     Dosage: 1200 MG (1 D), ORAL
     Route: 048
     Dates: start: 20060123, end: 20060202
  2. CYCLOPHOSPHAMIDE [Suspect]
     Indication: SARCOIDOSIS
     Dosage: 1 GRAM (1 CYCLICAL), INTRAVENOUS
     Route: 042
     Dates: start: 20060131
  3. NEXIUM [Suspect]
     Indication: ILL-DEFINED DISORDER
     Dosage: 40 MG (1 D), ORAL
     Route: 048
     Dates: start: 20051201
  4. PAROXETINE HYDROCHLORIDE [Suspect]
     Indication: ILL-DEFINED DISORDER
     Dosage: 20 MG (20 MG, 1 IN 1 D), ORAL
     Route: 048
     Dates: start: 20051201, end: 20060202

REACTIONS (4)
  - ALANINE AMINOTRANSFERASE INCREASED [None]
  - ASPARTATE AMINOTRANSFERASE INCREASED [None]
  - GAMMA-GLUTAMYLTRANSFERASE INCREASED [None]
  - PANCREATIC ENZYMES INCREASED [None]
